FAERS Safety Report 7483243-2 (Version None)
Quarter: 2011Q2

REPORT INFORMATION
  Report Type: 
  Country: None (occurrence: None)
  Receive Date: 20110517
  Receipt Date: 20110512
  Transmission Date: 20111010
  Serious: Yes (Other)
  Sender: FDA-Public Use
  Company Number: US-BRISTOL-MYERS SQUIBB COMPANY-15573595

PATIENT
  Age: 57 Year
  Sex: Male

DRUGS (7)
  1. FOLIC ACID [Concomitant]
     Dates: start: 20080909
  2. LISINOPRIL AND HYDROCHLOROTHIAZIDE [Concomitant]
     Dates: start: 20080909
  3. CORTISONE [Concomitant]
     Dates: start: 20110215
  4. VIAGRA [Concomitant]
     Dates: start: 20080930
  5. METHOTREXATE [Suspect]
     Dates: start: 20080909
  6. ABATACEPT [Suspect]
     Indication: RHEUMATOID ARTHRITIS
     Dosage: INTERRUPTED ON 09FEB2011
     Route: 058
     Dates: start: 20090526
  7. PROCHLORPERAZINE TAB [Concomitant]
     Indication: NAUSEA
     Dosage: Q 6 HOURS
     Dates: start: 20110315

REACTIONS (1)
  - COLON CANCER METASTATIC [None]
